FAERS Safety Report 6185633-7 (Version None)
Quarter: 2009Q2

REPORT INFORMATION
  Report Type: 
  Country: None (occurrence: None)
  Receive Date: 20090507
  Receipt Date: 20090501
  Transmission Date: 20091009
  Serious: No
  Sender: FDA-Public Use
  Company Number: 259768

PATIENT
  Age: 64 Year
  Sex: Female

DRUGS (3)
  1. NALBUPHINE HCL [Suspect]
     Indication: PAIN
     Dosage: 10 MG, ONCE, INTRAMUSCULAR
     Route: 030
     Dates: start: 20090430, end: 20090430
  2. VALIUM [Concomitant]
  3. (IZOFRAN /00955301/) [Concomitant]

REACTIONS (7)
  - ABDOMINAL PAIN UPPER [None]
  - BLOOD PRESSURE SYSTOLIC INCREASED [None]
  - HYPERHIDROSIS [None]
  - INCOHERENT [None]
  - PALLOR [None]
  - RESPIRATORY RATE INCREASED [None]
  - TREMOR [None]
